FAERS Safety Report 5920314-3 (Version None)
Quarter: 2008Q4

REPORT INFORMATION
  Report Type: 
  Country: None (occurrence: None)
  Receive Date: 20081016
  Receipt Date: 20081007
  Transmission Date: 20090506
  Serious: Yes (Hospitalization)
  Sender: FDA-Public Use
  Company Number: PHHY2008JP17779

PATIENT
  Sex: Male
  Weight: 80 kg

DRUGS (5)
  1. SANDOSTATIN [Suspect]
     Dosage: 100 UG QD
     Route: 058
     Dates: start: 20080716, end: 20080719
  2. SANDOSTATIN LAR [Suspect]
     Dosage: 20 MG, QMO
     Route: 030
     Dates: start: 20080723
  3. MELBIN [Concomitant]
     Indication: DIABETES MELLITUS
     Dosage: 750 MG/DAY
     Route: 048
     Dates: start: 20070501
  4. BASEN [Concomitant]
     Dosage: 0.9 MG/DAY
     Route: 048
     Dates: start: 20070501
  5. AMARYL [Concomitant]
     Dosage: 2 MG/DAY
     Route: 048

REACTIONS (11)
  - ABDOMINAL DISTENSION [None]
  - ABDOMINAL PAIN [None]
  - BLOOD ALKALINE PHOSPHATASE INCREASED [None]
  - BLOOD GLUCOSE INCREASED [None]
  - CHEST DISCOMFORT [None]
  - CONSTIPATION [None]
  - FLATULENCE [None]
  - GAIT DISTURBANCE [None]
  - INSULIN-LIKE GROWTH FACTOR DECREASED [None]
  - RED BLOOD CELL COUNT ABNORMAL [None]
  - SINUS BRADYCARDIA [None]
